FAERS Safety Report 5873545-5 (Version None)
Quarter: 2008Q3

REPORT INFORMATION
  Report Type: 
  Country: None (occurrence: None)
  Receive Date: 20080908
  Receipt Date: 20080818
  Transmission Date: 20090109
  Serious: No
  Sender: FDA-Public Use
  Company Number: US-BAYER-200810975BCC

PATIENT
  Age: 57 Year
  Sex: Male
  Weight: 69 kg

DRUGS (6)
  1. ALEVE [Suspect]
     Indication: MUSCLE STRAIN
     Dosage: TOTAL DAILY DOSE: 220 MG  UNIT DOSE: 220 MG
     Route: 048
     Dates: start: 20080306, end: 20080306
  2. FEXOFENADINE [Concomitant]
  3. COSOPT [Concomitant]
     Route: 047
  4. LUMIGAN [Concomitant]
     Route: 047
  5. ATENOLOL [Concomitant]
  6. WALGREENS ASPIRIN [Concomitant]

REACTIONS (1)
  - PARAESTHESIA [None]
